FAERS Safety Report 13144539 (Version 1)
Quarter: 2017Q1

REPORT INFORMATION
  Report Type: Spontaneous
  Country: US (occurrence: US)
  Receive Date: 20170124
  Receipt Date: 20170124
  Transmission Date: 20170428
  Serious: No
  Sender: FDA-Public Use
  Company Number: US-TEVA-721310ACC

PATIENT
  Sex: Male

DRUGS (1)
  1. DEXTROAMPHETAMINE SULFATE. [Suspect]
     Active Substance: DEXTROAMPHETAMINE SULFATE
     Dates: start: 20161207

REACTIONS (5)
  - Product physical issue [Unknown]
  - Disturbance in attention [Unknown]
  - Headache [Unknown]
  - Intentional product use issue [Unknown]
  - Malaise [Unknown]

NARRATIVE: CASE EVENT DATE: 20161207
